FAERS Safety Report 11336312 (Version 1)
Quarter: 2015Q3

REPORT INFORMATION
  Report Type: Other
  Country: ES (occurrence: ES)
  Receive Date: 20150804
  Receipt Date: 20150804
  Transmission Date: 20151125
  Serious: Yes (Other)
  Sender: FDA-Public Use
  Company Number: ES-ENDO PHARMACEUTICALS INC-2015-002093

PATIENT
  Age: 31 Year
  Sex: Female

DRUGS (2)
  1. ATENOLOL TABLETS [Suspect]
     Active Substance: ATENOLOL
     Indication: ALLERGY TEST
     Route: 048
  2. LABETALOL [Suspect]
     Active Substance: LABETALOL\LABETALOL HYDROCHLORIDE
     Indication: HYPERTENSION
     Route: 065

REACTIONS (2)
  - Acute generalised exanthematous pustulosis [Recovered/Resolved]
  - Drug cross-reactivity [Recovered/Resolved]
